FAERS Safety Report 6348089-7 (Version None)
Quarter: 2009Q3

REPORT INFORMATION
  Report Type: 
  Country: None (occurrence: None)
  Receive Date: 20090910
  Receipt Date: 20090902
  Transmission Date: 20100115
  Serious: Yes (Death, Other)
  Sender: FDA-Public Use
  Company Number: US-BAXTER-2009BH013642

PATIENT
  Sex: Female

DRUGS (1)
  1. HEPARIN SODIUM INJECTION [Suspect]
     Indication: DRUG USE FOR UNKNOWN INDICATION
     Route: 065

REACTIONS (7)
  - DEATH [None]
  - DIZZINESS [None]
  - DYSPNOEA [None]
  - LETHARGY [None]
  - NAUSEA [None]
  - RENAL FAILURE [None]
  - UNRESPONSIVE TO STIMULI [None]
